FAERS Safety Report 24850912 (Version 1)
Quarter: 2025Q1

REPORT INFORMATION
  Report Type: Spontaneous
  Country: US (occurrence: None)
  Receive Date: 20250116
  Receipt Date: 20250116
  Transmission Date: 20250408
  Serious: Yes (Life-Threatening, Hospitalization)
  Sender: FDA-CTU
  Company Number: None

PATIENT
  Age: 47 Year
  Sex: Female

DRUGS (1)
  1. RINVOQ [Suspect]
     Active Substance: UPADACITINIB
     Indication: Psoriasis
     Dosage: 30 MG QD ORAL
     Route: 048
     Dates: start: 202303, end: 202409

REACTIONS (1)
  - Carotid artery occlusion [None]

NARRATIVE: CASE EVENT DATE: 20240910
